FAERS Safety Report 8229095-4 (Version None)
Quarter: 2012Q1

REPORT INFORMATION
  Report Type: 
  Country: None (occurrence: None)
  Receive Date: 20120322
  Receipt Date: 20120313
  Transmission Date: 20120608
  Serious: Yes (Other)
  Sender: FDA-Public Use
  Company Number: IT-ASTRAZENECA-2012SE17386

PATIENT
  Age: 12205 Day
  Sex: Female

DRUGS (2)
  1. TAMOXIFEN CITRATE [Suspect]
     Indication: BREAST CANCER
     Route: 048
     Dates: start: 20110801, end: 20120216
  2. GONADORELIN INJ [Concomitant]
     Indication: BREAST CANCER
     Dosage: 3.75 MG/ 2 ML POWDER AND SOLVENT FOR INJECTION SUSPENSION
     Route: 042
     Dates: start: 20110915, end: 20120216

REACTIONS (6)
  - ERYTHEMA [None]
  - NAUSEA [None]
  - HOT FLUSH [None]
  - ARTHRALGIA [None]
  - VERTIGO [None]
  - HEADACHE [None]
